FAERS Safety Report 19926222 (Version 1)
Quarter: 2021Q4

REPORT INFORMATION
  Report Type: Spontaneous
  Country: US (occurrence: US)
  Receive Date: 20211006
  Receipt Date: 20211006
  Transmission Date: 20220303
  Serious: No
  Sender: FDA-Public Use
  Company Number: US-MYLANLABS-2021M1064917

PATIENT
  Sex: Female

DRUGS (1)
  1. ESTRADIOL [Suspect]
     Active Substance: ESTRADIOL
     Indication: Smear vaginal abnormal
     Dosage: UNK
     Route: 067

REACTIONS (2)
  - Application site pain [Recovered/Resolved]
  - Off label use [Not Recovered/Not Resolved]
